FAERS Safety Report 20025948 (Version 3)
Quarter: 2021Q4

REPORT INFORMATION
  Report Type: Spontaneous
  Country: US (occurrence: US)
  Receive Date: 20211102
  Receipt Date: 20211112
  Transmission Date: 20220303
  Serious: Yes (Other)
  Sender: FDA-Public Use
  Company Number: US-UNITED THERAPEUTICS-UNT-2021-022067

PATIENT
  Age: 42 Year
  Sex: Female

DRUGS (5)
  1. REMODULIN [Suspect]
     Active Substance: TREPROSTINIL
     Indication: Pulmonary arterial hypertension
     Dosage: UNK, CONTINUING
     Route: 058
     Dates: start: 20200125
  2. REMODULIN [Suspect]
     Active Substance: TREPROSTINIL
     Dosage: 0.028 ?G/KG, CONTINUING
     Route: 058
     Dates: start: 2021
  3. REMODULIN [Suspect]
     Active Substance: TREPROSTINIL
     Dosage: UNK, CONTINUING (AT AN INFUSION RATE OF 0.002ML/HR)
     Route: 058
     Dates: start: 202110
  4. REMODULIN [Suspect]
     Active Substance: TREPROSTINIL
     Dosage: UNK, CONTINUING (AT AN INFUSION RATE OF 0.004ML/HR)
     Route: 058
     Dates: start: 20211030
  5. REMODULIN [Suspect]
     Active Substance: TREPROSTINIL
     Dosage: UNK, CONTINUING (AT AN INFUSION RATE OF 0.006ML/HR)
     Route: 058
     Dates: start: 20211101

REACTIONS (10)
  - Deafness [Unknown]
  - Device leakage [Unknown]
  - Respiratory tract congestion [Unknown]
  - Dizziness [Unknown]
  - Vision blurred [Unknown]
  - Gait inability [Unknown]
  - Confusional state [Unknown]
  - Dyspnoea [Unknown]
  - Asthenia [Unknown]
  - Headache [Unknown]

NARRATIVE: CASE EVENT DATE: 20211028
